FAERS Safety Report 9237918 (Version 1)
Quarter: 2013Q2

REPORT INFORMATION
  Report Type: Spontaneous
  Country: US (occurrence: None)
  Receive Date: 20130415
  Receipt Date: 20130415
  Transmission Date: 20140414
  Serious: Yes (Hospitalization)
  Sender: FDA-Public Use
  Company Number: 7202840

PATIENT
  Age: 74 Year
  Sex: Female

DRUGS (6)
  1. LEVOTHYROX 75 (LEVOTHYROXINE SODIUM) [Suspect]
     Indication: HYPOTHYROIDISM
     Dosage: 1 DF (1 DF, L IN 1 D)
     Route: 048
     Dates: start: 2002
  2. ENBREL [Suspect]
     Indication: RHEUMATOID ARTHRITIS
     Dosage: 7.1429 MG (50 MG,1 IN 1 WK)
     Route: 058
     Dates: start: 20121112, end: 20121217
  3. CORTANCYL(PREDNISONE) (PREDNISONE) [Concomitant]
  4. METHOTREXATE(METHOTREXATE)(SOLUTION FOR INJECTION) (METHOTREXATE) [Concomitant]
  5. PNEUMOCOCCAL VACCINE ( PNEUMOCOCCAL [Concomitant]
  6. VACCINE(DIPHTHERIA, PERTUSSIS,TETANUS, POLIOMYELIT)(DIPHTHERIA,PERTUSSIS,TETANUS, POLIOMYELIT) [Concomitant]

REACTIONS (2)
  - Extremity necrosis [None]
  - Pain in extremity [None]
